FAERS Safety Report 6602546-4 (Version None)
Quarter: 2010Q1

REPORT INFORMATION
  Report Type: 
  Country: None (occurrence: None)
  Receive Date: 20100225
  Receipt Date: 20100215
  Transmission Date: 20100710
  Serious: Yes (Death)
  Sender: FDA-Public Use
  Company Number: FR-GENENTECH-281221

PATIENT
  Age: 75 Year
  Sex: Female
  Weight: 54 kg

DRUGS (10)
  1. XOLAIR [Suspect]
     Indication: DRUG USE FOR UNKNOWN INDICATION
     Dosage: 300 MG, 1/MONTH
     Dates: start: 20070404
  2. SOLUPRED [Concomitant]
     Indication: DRUG USE FOR UNKNOWN INDICATION
  3. SERETIDE [Concomitant]
     Indication: DRUG USE FOR UNKNOWN INDICATION
  4. VENTOLIN [Concomitant]
     Indication: DRUG USE FOR UNKNOWN INDICATION
  5. VASTAREL [Concomitant]
     Indication: DRUG USE FOR UNKNOWN INDICATION
  6. ECAZIDE [Concomitant]
     Indication: DRUG USE FOR UNKNOWN INDICATION
  7. FOSAMAX [Concomitant]
     Indication: DRUG USE FOR UNKNOWN INDICATION
  8. ATROVENT [Concomitant]
     Indication: DRUG USE FOR UNKNOWN INDICATION
  9. LEXOMIL [Concomitant]
     Indication: DRUG USE FOR UNKNOWN INDICATION
  10. CALCITE D [Concomitant]
     Indication: DRUG USE FOR UNKNOWN INDICATION

REACTIONS (11)
  - COUGH [None]
  - CREPITATIONS [None]
  - DEATH [None]
  - DYSPNOEA [None]
  - FATIGUE [None]
  - GENERAL PHYSICAL HEALTH DETERIORATION [None]
  - INFLAMMATION [None]
  - MALAISE [None]
  - ORGANISING PNEUMONIA [None]
  - PYREXIA [None]
  - RESPIRATORY FAILURE [None]
